FAERS Safety Report 4342828-2 (Version None)
Quarter: 2004Q2

REPORT INFORMATION
  Report Type: 
  Country: None (occurrence: None)
  Receive Date: 20040416
  Receipt Date: 20040405
  Transmission Date: 20050107
  Serious: Yes (Hospitalization)
  Sender: FDA-Public Use
  Company Number: JP-JNJFOC-20040400665

PATIENT
  Age: 39 Year
  Sex: Female

DRUGS (5)
  1. OFLOXACIN [Suspect]
     Indication: DIARRHOEA
     Dosage: 200 MG, 1 IN 1 DAY, ORAL
     Route: 048
     Dates: start: 20031230, end: 20040102
  2. FLAGYL [Suspect]
     Indication: DIARRHOEA
     Dosage: 1.5 G, ORAL
     Route: 048
     Dates: start: 20031218, end: 20040102
  3. SEGLOR (DIHYDROERGOTAMINE MESILATE) CAPSULES [Suspect]
     Indication: PINEALOMA
     Dosage: 10 MG, ORAL
     Route: 048
     Dates: end: 20040102
  4. LIDOCAINE [Concomitant]
  5. PROPOFOL [Concomitant]

REACTIONS (5)
  - ARTERIAL THROMBOSIS LIMB [None]
  - BLOOD FIBRINOGEN INCREASED [None]
  - FIBRIN D DIMER INCREASED [None]
  - PLATELET COUNT INCREASED [None]
  - WHITE BLOOD CELL COUNT INCREASED [None]
